FAERS Safety Report 7543957-2 (Version None)
Quarter: 2011Q2

REPORT INFORMATION
  Report Type: 
  Country: None (occurrence: None)
  Receive Date: 20110613
  Receipt Date: 20040917
  Transmission Date: 20111010
  Serious: Yes (Death)
  Sender: FDA-Public Use
  Company Number: PHHO2004ES07858

PATIENT
  Sex: Male

DRUGS (6)
  1. ZOMETA [Suspect]
     Indication: METASTASES TO BONE
     Dosage: 4 MG, QMO
     Route: 042
     Dates: start: 20030918
  2. ESTRACYT [Concomitant]
  3. ETOPOSIDE [Concomitant]
  4. CLONAZEPAM [Concomitant]
  5. TRAMADOL HCL [Concomitant]
  6. MELOXICAM [Concomitant]

REACTIONS (1)
  - DEATH [None]
